FAERS Safety Report 24031420 (Version 3)
Quarter: 2024Q3

REPORT INFORMATION
  Report Type: Report from Study
  Country: RU (occurrence: RU)
  Receive Date: 20240629
  Receipt Date: 20240709
  Transmission Date: 20241017
  Serious: Yes (Other)
  Sender: NOVARTIS
  Company Number: RU-002147023-NVSC2024RU121887

PATIENT
  Age: 1 Year
  Sex: Male
  Weight: 10.8 kg

DRUGS (5)
  1. ZOLGENSMA [Suspect]
     Active Substance: ONASEMNOGENE ABEPARVOVEC-XIOI
     Indication: Spinal muscular atrophy
     Dosage: 27.5 ML, ONCE/SINGLE
     Route: 041
     Dates: start: 20240522, end: 20240522
  2. CHOLECALCIFEROL [Concomitant]
     Active Substance: CHOLECALCIFEROL
     Indication: Product used for unknown indication
     Dosage: 4 DROPS, QD (ONCE PER DAY IN THE MORNING AT  BREAKFAST)
     Route: 065
  3. PREDNISOLONE [Concomitant]
     Active Substance: PREDNISOLONE
     Indication: Product used for unknown indication
     Dosage: 1 MG/KG, QD, (2 TABLETS, IN THE MORNING AT BREAKFAST)
     Route: 065
  4. ESOMEPRAZOLE [Concomitant]
     Active Substance: ESOMEPRAZOLE
     Indication: Product used for unknown indication
     Dosage: 1 SACHET (AT BEDTIME) QD
     Route: 065
  5. SIMETHICONE (DIMETHICONE) [Concomitant]
     Active Substance: DIMETHICONE
     Indication: Product used for unknown indication
     Dosage: 4 ML IN THE MORNING, 5 ML AT LUNCH, 5 ML IN THE EVENING)
     Route: 065

REACTIONS (19)
  - Aspartate aminotransferase increased [Recovering/Resolving]
  - Alanine aminotransferase increased [Unknown]
  - Blood lactate dehydrogenase increased [Recovering/Resolving]
  - Blood uric acid increased [Recovering/Resolving]
  - Blood potassium increased [Recovering/Resolving]
  - Prothrombin level increased [Recovering/Resolving]
  - Prothrombin time shortened [Recovering/Resolving]
  - International normalised ratio decreased [Recovering/Resolving]
  - Activated partial thromboplastin time shortened [Recovering/Resolving]
  - Haematocrit increased [Unknown]
  - Platelet count decreased [Unknown]
  - Mean cell volume increased [Unknown]
  - White blood cell count increased [Unknown]
  - Immature granulocyte count increased [Unknown]
  - Neutrophil count increased [Unknown]
  - Monocyte count increased [Unknown]
  - Blood creatinine decreased [Unknown]
  - Blood alkaline phosphatase decreased [Unknown]
  - Vomiting [Recovered/Resolved]

NARRATIVE: CASE EVENT DATE: 20240523
